FAERS Safety Report 5740207-4 (Version None)
Quarter: 2008Q2

REPORT INFORMATION
  Report Type: 
  Country: None (occurrence: None)
  Receive Date: 20080516
  Receipt Date: 20080507
  Transmission Date: 20081010
  Serious: Yes (Hospitalization, Other)
  Sender: FDA-Public Use
  Company Number: CH-WYE-G01250908

PATIENT
  Age: 80 Year
  Sex: Female
  Weight: 63 kg

DRUGS (13)
  1. EFFEXOR [Suspect]
     Indication: MAJOR DEPRESSION
     Route: 048
     Dates: start: 20060101, end: 20071010
  2. EFFEXOR [Interacting]
     Route: 048
     Dates: start: 20071011, end: 20071116
  3. EFFEXOR [Interacting]
     Route: 048
     Dates: start: 20071117
  4. ASPIRIN [Concomitant]
     Route: 048
  5. BIAXIN [Concomitant]
     Dates: start: 20071010, end: 20071016
  6. DAFALGAN [Concomitant]
     Route: 048
     Dates: start: 20071010
  7. CALCIMAGON [Concomitant]
     Route: 048
  8. ZINAT [Concomitant]
     Dates: start: 20071005, end: 20071010
  9. RISPERDAL CONSTA [Interacting]
     Indication: DELUSION
     Route: 030
     Dates: start: 20060202, end: 20060305
  10. RISPERDAL CONSTA [Interacting]
     Route: 030
     Dates: start: 20060306, end: 20071009
  11. RISPERDAL CONSTA [Interacting]
     Route: 030
     Dates: start: 20071010, end: 20071116
  12. RISPERDAL CONSTA [Interacting]
     Route: 030
     Dates: start: 20080115
  13. TENORMIN [Concomitant]
     Route: 048
     Dates: start: 20071005

REACTIONS (12)
  - BRADYPHRENIA [None]
  - BRONCHOPNEUMONIA [None]
  - BUNDLE BRANCH BLOCK RIGHT [None]
  - CREATININE RENAL CLEARANCE DECREASED [None]
  - DRUG INTERACTION [None]
  - EXTRAPYRAMIDAL DISORDER [None]
  - FALL [None]
  - HEART RATE IRREGULAR [None]
  - SUPRAVENTRICULAR EXTRASYSTOLES [None]
  - SUPRAVENTRICULAR TACHYCARDIA [None]
  - VENTRICULAR EXTRASYSTOLES [None]
  - VERTIGO [None]
